FAERS Safety Report 20016203 (Version 1)
Quarter: 2021Q4

REPORT INFORMATION
  Report Type: Spontaneous
  Country: US (occurrence: None)
  Receive Date: 20211102
  Receipt Date: 20211102
  Transmission Date: 20220303
  Serious: Yes (Hospitalization)
  Sender: FDA-Public Use
  Company Number: None

PATIENT
  Age: 69 Year
  Sex: Female

DRUGS (27)
  1. DIMETHYL FUMARATE [Suspect]
     Active Substance: DIMETHYL FUMARATE
     Indication: Multiple sclerosis
     Dosage: FREQUENCY : TWICE A DAY;?
     Route: 048
     Dates: start: 20201121
  2. AMLODIPINE [Concomitant]
     Active Substance: AMLODIPINE BESYLATE
  3. ACETAMINOPHEN\CODEINE PHOSPHATE [Concomitant]
     Active Substance: ACETAMINOPHEN\CODEINE PHOSPHATE
  4. ATORVASTATIN [Concomitant]
     Active Substance: ATORVASTATIN
  5. BACLOFEN [Concomitant]
     Active Substance: BACLOFEN
  6. BRILINTA [Concomitant]
     Active Substance: TICAGRELOR
  7. CARBAZEPIN [Concomitant]
  8. CELECOXIB [Concomitant]
     Active Substance: CELECOXIB
  9. DOXEPIN [Concomitant]
     Active Substance: DOXEPIN
  10. FUROSEMIDE [Concomitant]
     Active Substance: FUROSEMIDE
  11. GABAPENTIN [Concomitant]
     Active Substance: GABAPENTIN
  12. GEMFIBROZIL [Concomitant]
     Active Substance: GEMFIBROZIL
  13. ISORB MONO [Concomitant]
  14. LIPITOR [Concomitant]
     Active Substance: ATORVASTATIN CALCIUM
  15. METOCLOPRAMIDE [Concomitant]
     Active Substance: METOCLOPRAMIDE
  16. METOPROLSUC [Concomitant]
  17. VITAMINS [Concomitant]
     Active Substance: VITAMINS
  18. NITROGLYCERIN [Concomitant]
     Active Substance: NITROGLYCERIN
  19. OMEPRAZOLE [Concomitant]
     Active Substance: OMEPRAZOLE
  20. PANTOPRAZOLE [Concomitant]
     Active Substance: PANTOPRAZOLE
  21. QUETIAPINE [Concomitant]
     Active Substance: QUETIAPINE
  22. RAMIPRIL [Concomitant]
     Active Substance: RAMIPRIL
  23. REPATHA [Concomitant]
     Active Substance: EVOLOCUMAB
  24. SILENOR [Concomitant]
     Active Substance: DOXEPIN HYDROCHLORIDE
  25. SPIRONOLACTONE [Concomitant]
     Active Substance: SPIRONOLACTONE
  26. TIZANINDINE [Concomitant]
  27. VOLTAREN [Concomitant]
     Active Substance: DICLOFENAC SODIUM

REACTIONS (3)
  - Loss of consciousness [None]
  - Hypotension [None]
  - Fall [None]

NARRATIVE: CASE EVENT DATE: 20211025
